FAERS Safety Report 5394492-1 (Version None)
Quarter: 2007Q3

REPORT INFORMATION
  Report Type: 
  Country: None (occurrence: None)
  Receive Date: 20070723
  Receipt Date: 20070716
  Transmission Date: 20080115
  Serious: Yes (Other)
  Sender: FDA-Public Use
  Company Number: US-ASTRAZENECA-2007UW16436

PATIENT
  Sex: Female
  Weight: 90 kg

DRUGS (3)
  1. SEROQUEL [Suspect]
     Indication: HALLUCINATION, AUDITORY
     Route: 048
  2. ZYPREXA [Concomitant]
     Dates: start: 19990101
  3. RISPERDAL [Concomitant]

REACTIONS (2)
  - COLLAPSE OF LUNG [None]
  - DIABETES MELLITUS [None]
